FAERS Safety Report 18279775 (Version 1)
Quarter: 2020Q3

REPORT INFORMATION
  Report Type: Spontaneous
  Country: FR (occurrence: FR)
  Receive Date: 20200917
  Receipt Date: 20200917
  Transmission Date: 20201103
  Serious: Yes (Hospitalization)
  Sender: FDA-Public Use
  Company Number: FR-MYLANLABS-2020M1078676

PATIENT
  Age: 67 Year
  Sex: Male

DRUGS (3)
  1. DEPAKINE                           /00228501/ [Suspect]
     Active Substance: VALPROIC ACID
     Indication: EPILEPSY
     Dosage: UNK
     Route: 048
  2. ALLOPURINOL. [Suspect]
     Active Substance: ALLOPURINOL
     Indication: GOUT
     Dosage: UNK
     Route: 048
  3. LOXAPAC                            /00401801/ [Suspect]
     Active Substance: LOXAPINE
     Indication: MENTAL DISORDER
     Dosage: UNK
     Route: 048

REACTIONS (4)
  - Bradypnoea [Unknown]
  - Hypertonia [Unknown]
  - Coma [Unknown]
  - Miosis [Unknown]

NARRATIVE: CASE EVENT DATE: 20200208
